FAERS Safety Report 6746092-6 (Version None)
Quarter: 2010Q2

REPORT INFORMATION
  Report Type: 
  Country: None (occurrence: None)
  Receive Date: 20100526
  Receipt Date: 20100511
  Transmission Date: 20101027
  Serious: Yes (Other)
  Sender: FDA-Public Use
  Company Number: BCN-AS-2010-RR-149

PATIENT
  Age: 43 Year
  Sex: Female

DRUGS (1)
  1. IBUPROFEN [Suspect]

REACTIONS (3)
  - OVERDOSE [None]
  - RENAL IMPAIRMENT [None]
  - RHABDOMYOLYSIS [None]
